FAERS Safety Report 5011988-2 (Version None)
Quarter: 2006Q2

REPORT INFORMATION
  Report Type: 
  Country: None (occurrence: None)
  Receive Date: 20060524
  Receipt Date: 20060510
  Transmission Date: 20061013
  Serious: Yes (Hospitalization)
  Sender: FDA-Public Use
  Company Number: 219815

PATIENT
  Age: 75 Year
  Sex: Male
  Weight: 82 kg

DRUGS (7)
  1. RITUXIMAB(RITUXIMAB) CONC FOR SOLUTION FOR INFUSION [Suspect]
     Indication: CHRONIC LYMPHOCYTIC LEUKAEMIA
     Dosage: 970 MG, Q28D, INTRAVENOUS
     Route: 042
     Dates: start: 20040511, end: 20040928
  2. FLUDARABINE [Suspect]
     Indication: CHRONIC LYMPHOCYTIC LEUKAEMIA
     Dosage: 45 MG, Q28D,  INTRAVENOUS
     Route: 042
     Dates: start: 20040512, end: 20040930
  3. CYCLOPHOSPHAMIDE [Suspect]
     Indication: CHRONIC LYMPHOCYTIC LEUKAEMIA
     Dosage: 485 MG, Q28D, INTRAVENOUS
     Route: 042
     Dates: start: 20040512, end: 20040930
  4. VALACYCLOVIR (VALACYCLOVIR) [Concomitant]
  5. OMEPRAZOLE [Concomitant]
  6. DACORTIN (PREDNISONE) [Concomitant]
  7. PREDNISONE TAB [Concomitant]

REACTIONS (14)
  - BLOOD FIBRINOGEN INCREASED [None]
  - CEREBRAL HAEMORRHAGE [None]
  - FEBRILE NEUTROPENIA [None]
  - HAEMATOCRIT DECREASED [None]
  - HAEMOGLOBIN DECREASED [None]
  - HYPOAESTHESIA [None]
  - INSOMNIA [None]
  - PAIN [None]
  - PARAESTHESIA [None]
  - PROTHROMBIN TIME PROLONGED [None]
  - SENSORY DISTURBANCE [None]
  - SENSORY LOSS [None]
  - SUBDURAL HAEMATOMA [None]
  - THROMBOCYTOPENIA [None]
